FAERS Safety Report 4920726-0 (Version None)
Quarter: 2006Q1

REPORT INFORMATION
  Report Type: 
  Country: None (occurrence: None)
  Receive Date: 20060223
  Receipt Date: 19971216
  Transmission Date: 20060701
  Serious: Yes (Hospitalization, Other)
  Sender: FDA-Public Use
  Company Number: US-1997-UP-00407

PATIENT
  Sex: Female

DRUGS (11)
  1. PRAMIPEXOLE DIHYDROCHLORIDE [Suspect]
     Indication: PARKINSON'S DISEASE
     Route: 048
     Dates: start: 19970611, end: 19981122
  2. DYAZIDE [Concomitant]
     Dates: start: 19980101
  3. FELODIPINE [Concomitant]
     Dates: start: 19980625
  4. PREMPRO (PREMARIN;CYCRIN 14/14) [Concomitant]
     Dates: start: 19970101
  5. M.V.I. [Concomitant]
     Dates: start: 19850101
  6. ASCORBIC ACID [Concomitant]
     Dates: start: 19850101
  7. CORTISONE ACETATE TAB [Concomitant]
     Dates: start: 19971117
  8. RELAFEN [Concomitant]
     Dates: start: 19980625
  9. CALTRATE [Concomitant]
     Dates: start: 19970515
  10. VITAMIN B COMPLEX CAP [Concomitant]
     Dates: start: 19850101
  11. VITAMIN E [Concomitant]
     Dates: start: 19850101

REACTIONS (2)
  - BASAL CELL CARCINOMA [None]
  - SYNCOPE [None]
